FAERS Safety Report 8037589 (Version 6)
Quarter: 2013Q3

REPORT INFORMATION
  Report Type: Report from Study
  Country: DE (occurrence: DE)
  Receive Date: 20110715
  Receipt Date: 20130805
  Transmission Date: 20140515
  Serious: Yes (Other)
  Sender: FDA-Public Use
  Company Number: DE-UCBSA-036802

PATIENT
  Age: 46 Year
  Sex: Female
  Weight: 45 kg

DRUGS (19)
  1. CERTOLIZUMAB PEGOL [Suspect]
     Indication: RHEUMATOID ARTHRITIS
     Dosage: DOSE: 20MG; NO OF DOSES RECEIVED :14
     Route: 058
     Dates: start: 20101006, end: 20130330
  2. FOLIC ACID [Concomitant]
     Indication: RHEUMATOID ARTHRITIS
     Route: 048
     Dates: start: 200810
  3. CALCIUM [Concomitant]
     Indication: RHEUMATOID ARTHRITIS
     Route: 048
     Dates: start: 20100209
  4. CALCIUM [Concomitant]
     Indication: OSTEOPOROSIS PROPHYLAXIS
     Route: 048
     Dates: start: 20100209
  5. MTX [Concomitant]
     Indication: RHEUMATOID ARTHRITIS
     Dosage: DOSE: 15 MG, QS
     Route: 058
     Dates: start: 200810, end: 20110515
  6. MTX [Concomitant]
     Indication: RHEUMATOID ARTHRITIS
     Dosage: DOSE: 10 MG, QS
     Dates: start: 20130110
  7. VITAMIN D [Concomitant]
     Indication: RHEUMATOID ARTHRITIS
     Route: 048
     Dates: start: 20100209
  8. VITAMIN D [Concomitant]
     Indication: OSTEOPOROSIS PROPHYLAXIS
     Route: 048
     Dates: start: 20100209
  9. SALOFALK [Concomitant]
     Indication: COLITIS MICROSCOPIC
     Dosage: DOSE: 250-500 MG, TWICE DAILY
     Route: 048
     Dates: start: 200908, end: 20120326
  10. BUDENOFALK [Concomitant]
     Indication: COLITIS MICROSCOPIC
     Route: 048
     Dates: start: 200804, end: 20110721
  11. BUDENOFALK [Concomitant]
     Indication: COLITIS MICROSCOPIC
     Dates: start: 20111123, end: 20120226
  12. BUDENOFALK [Concomitant]
     Indication: COLITIS MICROSCOPIC
     Dosage: FORM: 10
     Dates: start: 20130110
  13. DECORTIN [Concomitant]
     Indication: COLITIS MICROSCOPIC
     Dosage: DOSE: 4-100 MG, ONCE DAILY
     Route: 048
     Dates: start: 20110412, end: 20111123
  14. LOPERAMID [Concomitant]
     Indication: COLITIS MICROSCOPIC
     Dates: start: 20110127
  15. TAVANIC [Concomitant]
     Indication: URINARY TRACT INFECTION
     Dates: start: 20111123, end: 20111125
  16. TAVANIC [Concomitant]
     Indication: URINARY TRACT INFECTION
     Dates: start: 20120125, end: 20120128
  17. DAIVONEX [Concomitant]
     Indication: PSORIASIS
     Dates: start: 201007
  18. DAIVOBET [Concomitant]
     Indication: PSORIASIS
     Dates: start: 201007
  19. NOVALGIN [Concomitant]
     Indication: PAIN
     Dosage: DOSE: UNKNOWN DOSE
     Dates: start: 201011

REACTIONS (2)
  - Colitis microscopic [Recovering/Resolving]
  - Psoriasis [Recovered/Resolved]
